FAERS Safety Report 5786842-9 (Version None)
Quarter: 2008Q2

REPORT INFORMATION
  Report Type: 
  Country: None (occurrence: None)
  Receive Date: 20080620
  Receipt Date: 20080613
  Transmission Date: 20081010
  Serious: Yes (Hospitalization)
  Sender: FDA-Public Use
  Company Number: 163-20785-08032005

PATIENT
  Age: 63 Year
  Sex: Male

DRUGS (10)
  1. THALOMID [Suspect]
     Indication: MULTIPLE MYELOMA
     Dosage: 50 MG,  1 IN 1 D,  ORAL; 100 MG, QD, ORAL;  200 MG, QD, ORAL
     Route: 048
     Dates: start: 20051018, end: 20051129
  2. THALOMID [Suspect]
     Indication: MULTIPLE MYELOMA
     Dosage: 50 MG,  1 IN 1 D,  ORAL; 100 MG, QD, ORAL;  200 MG, QD, ORAL
     Route: 048
     Dates: start: 20051130, end: 20060615
  3. THALOMID [Suspect]
     Indication: MULTIPLE MYELOMA
     Dosage: 50 MG,  1 IN 1 D,  ORAL; 100 MG, QD, ORAL;  200 MG, QD, ORAL
     Route: 048
     Dates: start: 20060616, end: 20080225
  4. LOVENOX [Concomitant]
  5. TAXOTERE [Concomitant]
  6. AVASTIN [Concomitant]
  7. LISINOPRIL [Concomitant]
  8. HYDROCHLOROTHIAZIDE [Concomitant]
  9. ENOXAPARIN SODIUM [Concomitant]
  10. DOCETAXEL [Concomitant]

REACTIONS (4)
  - RENAL FAILURE ACUTE [None]
  - RHABDOMYOLYSIS [None]
  - URINARY TRACT INFECTION [None]
  - UROSEPSIS [None]
